FAERS Safety Report 8138980 (Version 30)
Quarter: 2022Q3

REPORT INFORMATION
  Report Type: Spontaneous
  Country: GB (occurrence: GB)
  Receive Date: 20110916
  Receipt Date: 20220825
  Transmission Date: 20221026
  Serious: Yes (Hospitalization, Other)
  Sender: FDA-Public Use
  Company Number: GB-SANOFI-AVENTIS-2011SA054083

PATIENT
  Age: 21 Year
  Sex: Female

DRUGS (76)
  1. GABAPENTIN [Suspect]
     Active Substance: GABAPENTIN
     Indication: Product used for unknown indication
     Dosage: 900 MILLIGRAM, QD, DOSAGE FORM: UNSPECIFIED
     Route: 048
  2. GABAPENTIN [Suspect]
     Active Substance: GABAPENTIN
     Dosage: 3600 MILLIGRAM, QD
     Route: 048
  3. PREGABALIN [Suspect]
     Active Substance: PREGABALIN
     Indication: Product used for unknown indication
     Dosage: DOSAGE FORM: UNSPECIFIED
     Route: 048
  4. PREGABALIN [Suspect]
     Active Substance: PREGABALIN
     Dosage: UNK
     Route: 048
  5. BETAHISTINE [Suspect]
     Active Substance: BETAHISTINE
     Indication: Product used for unknown indication
     Dosage: 24 MILLIGRAM, QD (DOSAGE FORM: UNSPECIFIED)
     Route: 048
  6. METOCLOPRAMIDE [Suspect]
     Active Substance: METOCLOPRAMIDE
     Indication: Abdominal pain
     Dosage: (FREQUENCY - IN 8 HOURS 10 MG, 3/DAY)
     Route: 048
  7. METOCLOPRAMIDE [Suspect]
     Active Substance: METOCLOPRAMIDE
     Indication: Vomiting
     Dosage: 10 MILLIGRAM, Q8H, TID
     Route: 048
  8. METOCLOPRAMIDE [Suspect]
     Active Substance: METOCLOPRAMIDE
     Dosage: 50 MILLIGRAM, QD
     Route: 048
  9. METOCLOPRAMIDE [Suspect]
     Active Substance: METOCLOPRAMIDE
     Dosage: 30 MILLIGRAM, QD(10 MG, 3/DAY)
     Route: 048
     Dates: start: 200907, end: 200907
  10. TRAMADOL [Suspect]
     Active Substance: TRAMADOL
     Indication: Abdominal pain
     Dosage: 150 MILLIGRAM, QD 50 MG, TID
     Route: 048
     Dates: start: 200904, end: 200909
  11. TRAMADOL [Suspect]
     Active Substance: TRAMADOL
     Dosage: 400 MG, QD (100 MG, 4/DAY)
     Route: 048
     Dates: start: 200910, end: 200911
  12. TRAMADOL [Suspect]
     Active Substance: TRAMADOL
     Dosage: UNK, DOSAGE FORM: UNSPECIFIED
     Route: 065
  13. TRAMADOL [Suspect]
     Active Substance: TRAMADOL
     Dosage: QD, FREQUENCY -1 IN 1 DAYS
     Route: 065
  14. TRAMADOL [Suspect]
     Active Substance: TRAMADOL
     Dosage: 400 MILLIGRAM, QD
     Route: 065
  15. TRAMADOL [Suspect]
     Active Substance: TRAMADOL
     Dosage: 50 MILLIGRAM, TID
     Route: 065
     Dates: start: 200909, end: 201011
  16. TRAMADOL [Suspect]
     Active Substance: TRAMADOL
     Dosage: 150 MILLIGRAM, QD
     Route: 048
     Dates: start: 200909, end: 201011
  17. TRAMADOL [Suspect]
     Active Substance: TRAMADOL
     Dosage: 450 MG, QD (150 MG, TID (50 MG, 3/DAY)
     Route: 048
     Dates: start: 200904, end: 200909
  18. TRAMADOL [Suspect]
     Active Substance: TRAMADOL
     Dosage: 450 MG, QD (150 MG, TID (50 MG, 3/DAY)
     Route: 048
     Dates: start: 200904, end: 201009
  19. TRAMADOL [Suspect]
     Active Substance: TRAMADOL
     Dosage: 100 MILLIGRAM, QID
     Route: 048
  20. TRAMADOL [Suspect]
     Active Substance: TRAMADOL
     Dosage: 450 MILLIGRAM, MONTHLY
     Route: 065
     Dates: start: 200904, end: 200909
  21. TRAMADOL [Suspect]
     Active Substance: TRAMADOL
     Dosage: 400 MILLIGRAM, QD (400 MG, QD (100 MG, 4/DAY))
     Route: 048
     Dates: start: 200909, end: 200911
  22. TRAMADOL [Suspect]
     Active Substance: TRAMADOL
     Dosage: 1600 MILLIGRAM, QD (400 MILLIGRAM, QID)
     Route: 065
     Dates: start: 200910, end: 200911
  23. TRAMADOL [Suspect]
     Active Substance: TRAMADOL
     Dosage: 400 MILLIGRAM, QD
     Route: 048
     Dates: start: 200904, end: 200909
  24. DOMPERIDONE [Suspect]
     Active Substance: DOMPERIDONE
     Indication: Product used for unknown indication
     Dosage: 10 MILLIGRAM, TID, UP TO THREE TIMES A DAY
     Route: 048
  25. DOMPERIDONE [Suspect]
     Active Substance: DOMPERIDONE
     Dosage: 10 MILLIGRAM
     Route: 048
  26. DOMPERIDONE [Suspect]
     Active Substance: DOMPERIDONE
     Dosage: 30 MG, QD (10 MILLIGRAM, UP TO THREE TIMES A DAY
     Route: 048
  27. PRUCALOPRIDE [Suspect]
     Active Substance: PRUCALOPRIDE
     Indication: Product used for unknown indication
     Dosage: 2 MILLIGRAM, QD
     Route: 048
  28. COCODAMOL [Suspect]
     Active Substance: ACETAMINOPHEN\CODEINE PHOSPHATE
     Indication: Product used for unknown indication
     Dosage: 32 DOSAGE FORM, QD (30MG/500MG, 8 DF, QID, TABLET)
     Route: 065
  29. COCODAMOL [Suspect]
     Active Substance: ACETAMINOPHEN\CODEINE PHOSPHATE
     Dosage: 8 DOSAGE FORM, QD 30MG/500MG
     Route: 048
  30. COCODAMOL [Suspect]
     Active Substance: ACETAMINOPHEN\CODEINE PHOSPHATE
     Dosage: 530 MILLIGRAM, QD (8 DF DAILY, 30MG/500MG)
     Route: 048
  31. COCODAMOL [Suspect]
     Active Substance: ACETAMINOPHEN\CODEINE PHOSPHATE
     Indication: Product used for unknown indication
     Dosage: 8 MICROGRAM, (8 UG/L (30MG/500MG)
     Route: 048
  32. COCODAMOL [Suspect]
     Active Substance: ACETAMINOPHEN\CODEINE PHOSPHATE
     Dosage: 30MG/500MG
     Route: 048
  33. COCODAMOL [Suspect]
     Active Substance: ACETAMINOPHEN\CODEINE PHOSPHATE
     Dosage: 30MG/500MG (ONCE DAILY)8 DOSAGE FORM, 1X/DAY:QD
     Route: 048
  34. COCODAMOL [Suspect]
     Active Substance: ACETAMINOPHEN\CODEINE PHOSPHATE
     Dosage: 8 DOSAGE FORM, FOUR TIMES/DAY (30MG/500MG)
     Route: 065
  35. AMITRIPTYLINE [Suspect]
     Active Substance: AMITRIPTYLINE
     Indication: Product used for unknown indication
     Dosage: 100 MILLIGRAM, QHS
     Route: 048
  36. AMITRIPTYLINE [Suspect]
     Active Substance: AMITRIPTYLINE
     Dosage: 100 MILLIGRAM, QD (AT NIGHT)
     Route: 048
  37. AMITRIPTYLINE [Suspect]
     Active Substance: AMITRIPTYLINE
     Indication: Product used for unknown indication
     Dosage: 100 MILLIGRAM, QD, AT NIGHT
     Route: 048
  38. CYCLIZINE [Suspect]
     Active Substance: CYCLIZINE
     Indication: Nausea
     Dosage: 50 MILLIGRAM, QD (150 MG, QD, 50 MG, 3/DAY)
     Route: 065
  39. CYCLIZINE [Suspect]
     Active Substance: CYCLIZINE
     Indication: Vomiting
     Dosage: 150 MG, QD,50 MG, 3/DAY
     Route: 065
  40. CYCLIZINE [Suspect]
     Active Substance: CYCLIZINE
     Dosage: 50 MILLIGRAM, TID, 50 MG, 3/DAY
     Route: 065
  41. CYCLIZINE [Suspect]
     Active Substance: CYCLIZINE
     Dosage: 8 DOSAGE FORM, 1X/DAY:QD
     Route: 048
  42. CYCLIZINE [Suspect]
     Active Substance: CYCLIZINE
     Dosage: UNK, DOSAGE FORM: UNSPECIFIED
     Route: 065
  43. CYCLIZINE [Suspect]
     Active Substance: CYCLIZINE
     Dosage: 100 MILLIGRAM, TID
     Route: 065
  44. CYCLIZINE [Suspect]
     Active Substance: CYCLIZINE
     Dosage: 100 MILLIGRAM, TID
     Route: 065
  45. CYCLIZINE [Suspect]
     Active Substance: CYCLIZINE
     Dosage: 150 MILLIGRAM, QD
     Route: 048
  46. CYCLIZINE [Suspect]
     Active Substance: CYCLIZINE
     Dosage: 300 MILLIGRAM, QD (100 MILLIGRAM, TID)
     Route: 065
  47. CYCLIZINE [Suspect]
     Active Substance: CYCLIZINE
     Dosage: 150 MILLIGRAM, QD,50 MG, TID (50 MG, 3/DAY, 8 DOSAGE FORM, 1X/DAY:QD);
     Route: 048
  48. CODEINE [Suspect]
     Active Substance: CODEINE
     Indication: Product used for unknown indication
     Dosage: 8 DOSAGE FORM, QID
     Route: 048
  49. CODEINE [Suspect]
     Active Substance: CODEINE
     Dosage: 8 DOSAGE FORM, QID (30MG/500MG)
     Route: 048
  50. CODEINE [Suspect]
     Active Substance: CODEINE
     Dosage: 32 DOSAGE FORM, QD (30MG/500MG)
     Route: 048
  51. ACETAMINOPHEN [Suspect]
     Active Substance: ACETAMINOPHEN
     Indication: Product used for unknown indication
     Dosage: 8 DOSAGE FORM, QID
     Route: 048
  52. ACETAMINOPHEN [Suspect]
     Active Substance: ACETAMINOPHEN
     Dosage: 8 DOSAGE FORM, QID (30MG/500MG)
     Route: 048
  53. ACETAMINOPHEN [Suspect]
     Active Substance: ACETAMINOPHEN
     Dosage: 8 DOSAGE FORM, QID
     Route: 048
  54. ACETAMINOPHEN [Suspect]
     Active Substance: ACETAMINOPHEN
     Dosage: 8 DOSAGE FORM, QID (30MG/500MG)
     Route: 048
  55. ACETAMINOPHEN [Suspect]
     Active Substance: ACETAMINOPHEN
     Dosage: 32 DOSAGE FORM, QD (30MG/500MG)
     Route: 048
  56. ACETAMINOPHEN [Suspect]
     Active Substance: ACETAMINOPHEN
     Dosage: 530 MILLIGRAM, QD, (8 DOSAGE FORM, DAILY, 30MG/500MG)
     Route: 065
  57. ACETAMINOPHEN\CODEINE PHOSPHATE [Suspect]
     Active Substance: ACETAMINOPHEN\CODEINE PHOSPHATE
     Indication: Product used for unknown indication
     Dosage: 32 DOSAGE FORM, QID
     Route: 048
  58. ACETAMINOPHEN\CODEINE PHOSPHATE [Suspect]
     Active Substance: ACETAMINOPHEN\CODEINE PHOSPHATE
     Dosage: 8 DOSAGE FORM, QD, (30MG/500MG, 1X/DAY:QD)
     Route: 048
  59. ACETAMINOPHEN\CODEINE PHOSPHATE [Suspect]
     Active Substance: ACETAMINOPHEN\CODEINE PHOSPHATE
     Dosage: 32 DOSAGE FORM, QD, (30MG/500MG) (CO-CODAMOL)
     Route: 048
  60. IBUPROFEN [Concomitant]
     Active Substance: IBUPROFEN
     Indication: Abdominal pain
     Dosage: FREQUENCY -3 IN 8 HOURS 400 MG, 3/DAY
     Route: 065
  61. IBUPROFEN [Concomitant]
     Active Substance: IBUPROFEN
     Dosage: UNK
     Route: 065
  62. IBUPROFEN [Concomitant]
     Active Substance: IBUPROFEN
     Dosage: 1200 MILLIGRAM, QD,400 MG, TID (400 MG, 3/DAY)
     Route: 065
  63. OMEPRAZOLE [Concomitant]
     Active Substance: OMEPRAZOLE
     Indication: Dyspepsia
     Dosage: FREQUENCY -1 IN 1 DAYS 40 MG, QD
     Route: 065
  64. OMEPRAZOLE [Concomitant]
     Active Substance: OMEPRAZOLE
     Dosage: UNK
     Route: 065
  65. OMEPRAZOLE [Concomitant]
     Active Substance: OMEPRAZOLE
     Dosage: 40 MILLIGRAM, QD
     Route: 065
  66. SUMATRIPTAN [Concomitant]
     Active Substance: SUMATRIPTAN
     Indication: Migraine
     Dosage: 50 MILLIGRAM, QD (FREQUENCY -1 IN 1 DAYS 50 MG, QD)
     Route: 065
  67. SUMATRIPTAN [Concomitant]
     Active Substance: SUMATRIPTAN
     Dosage: UNK
     Route: 065
  68. HYDROCORTISONE [Suspect]
     Active Substance: HYDROCORTISONE
     Indication: Product used for unknown indication
     Dosage: 150 MILLIGRAM, TID
     Route: 048
     Dates: start: 200904, end: 200909
  69. HYDROCORTISONE [Suspect]
     Active Substance: HYDROCORTISONE
     Dosage: 400 MILLIGRAM, QID
     Route: 048
     Dates: start: 200910, end: 200911
  70. HYDROCORTISONE [Suspect]
     Active Substance: HYDROCORTISONE
     Dosage: UNK
     Route: 065
  71. HYDROCORTISONE [Suspect]
     Active Substance: HYDROCORTISONE
     Dosage: 150 MILLIGRAM, TID (150 MG, TID)
     Route: 048
  72. HYDROCORTISONE [Suspect]
     Active Substance: HYDROCORTISONE
     Dosage: 450 MILLIGRAM, QD
     Route: 048
     Dates: start: 200904, end: 200909
  73. HYDROCORTISONE [Suspect]
     Active Substance: HYDROCORTISONE
     Dosage: 1600 MILLIGRAM, QD450 MG, QD (150 MG, TID)
     Route: 048
     Dates: start: 200910, end: 200911
  74. LANSOPRAZOLE [Concomitant]
     Active Substance: LANSOPRAZOLE
     Indication: Product used for unknown indication
     Dosage: 60 MILLIGRAM, DAILY, 30 MG BID
     Route: 048
  75. LANSOPRAZOLE [Concomitant]
     Active Substance: LANSOPRAZOLE
     Dosage: UNK
     Route: 065
  76. OMEPRAZOLE [Concomitant]
     Active Substance: OMEPRAZOLE
     Indication: Dyspepsia
     Dosage: 40 MILLIGRAM, QD
     Route: 065

REACTIONS (11)
  - Adrenal insufficiency [Recovered/Resolved]
  - Hyperprolactinaemia [Recovering/Resolving]
  - Pituitary tumour benign [Recovering/Resolving]
  - Secondary adrenocortical insufficiency [Recovered/Resolved]
  - Lethargy [Recovered/Resolved]
  - Vision blurred [Unknown]
  - Abdominal pain [Recovered/Resolved]
  - Dizziness [Recovered/Resolved]
  - Headache [Recovered/Resolved]
  - Vomiting [Recovered/Resolved]
  - Drug ineffective [Unknown]

NARRATIVE: CASE EVENT DATE: 20091101
